FAERS Safety Report 4626807-3 (Version None)
Quarter: 2005Q1

REPORT INFORMATION
  Report Type: 
  Country: None (occurrence: None)
  Receive Date: 20050330
  Receipt Date: 20050304
  Transmission Date: 20050727
  Serious: No
  Sender: FDA-Public Use
  Company Number: 10603

PATIENT
  Age: 2 Year
  Sex: Male

DRUGS (4)
  1. METHOTREXATE [Suspect]
     Indication: ACUTE LYMPHOCYTIC LEUKAEMIA
     Dosage: SEE IMAGE
  2. PREDNISOLONE [Suspect]
     Indication: ACUTE LYMPHOCYTIC LEUKAEMIA
     Dosage: 4620 MG/M2 TOTAL
  3. VINCRISTINE [Concomitant]
  4. ASPARAGINASE [Concomitant]

REACTIONS (1)
  - LEUKOENCEPHALOPATHY [None]
